FAERS Safety Report 8814573 (Version 1)
Quarter: 2012Q4

REPORT INFORMATION
  Report Type: 
  Country: IT (occurrence: IT)
  Receive Date: 20120928
  Receipt Date: 20120928
  Transmission Date: 20130627
  Serious: Yes (Disabling, Other)
  Sender: FDA-Public Use
  Company Number: IT-MYLANLABS-2012S1019470

PATIENT
  Age: 46 Year
  Sex: Female

DRUGS (3)
  1. IFOSFAMIDE [Suspect]
     Indication: ACUTE MYELOID LEUKAEMIA
     Route: 065
     Dates: start: 2004
  2. CARBOPLATIN [Suspect]
     Indication: ACUTE MYELOID LEUKAEMIA
     Route: 065
     Dates: start: 2004
  3. ETOPOSIDE [Suspect]
     Indication: ACUTE MYELOID LEUKAEMIA
     Route: 065
     Dates: start: 2004

REACTIONS (5)
  - Aspergillosis [Recovered/Resolved]
  - Gastrointestinal fungal infection [Recovered/Resolved]
  - Neutropenia [Unknown]
  - Septic shock [Recovered/Resolved]
  - Cardiopulmonary failure [Recovered/Resolved]
